FAERS Safety Report 4879493-1 (Version None)
Quarter: 2005Q4

REPORT INFORMATION
  Report Type: 
  Country: None (occurrence: None)
  Receive Date: 20051209
  Receipt Date: 20050930
  Transmission Date: 20060501
  Serious: Yes (Death)
  Sender: FDA-Public Use
  Company Number: USA-2005-0021376

PATIENT
  Age: 20 Year
  Sex: Female
  Weight: 57.6 kg

DRUGS (6)
  1. OXYCONTIN [Suspect]
  2. ETHANOL (ETHANOL) [Suspect]
  3. COCAINE (COCAINE) [Suspect]
  4. FENTANYL [Suspect]
  5. HYDROCODONE BITARTRATE (HYDROCODONE BITARTRATE) [Suspect]
  6. PROMETHAZINE [Suspect]

REACTIONS (1)
  - MULTIPLE DRUG OVERDOSE ACCIDENTAL [None]
